FAERS Safety Report 13737877 (Version 1)
Quarter: 2017Q3

REPORT INFORMATION
  Report Type: Spontaneous
  Country: US (occurrence: US)
  Receive Date: 20170710
  Receipt Date: 20170710
  Transmission Date: 20171127
  Serious: Yes (Hospitalization)
  Sender: FDA-Public Use
  Company Number: US-SAOL THERAPEUTICS-2016SAO00722

PATIENT
  Sex: Male

DRUGS (1)
  1. LIORESAL [Suspect]
     Active Substance: BACLOFEN
     Indication: MUSCLE SPASTICITY
     Dosage: 24 ?G, \DAY
     Route: 037
     Dates: start: 20160915

REACTIONS (2)
  - Hypersensitivity [Unknown]
  - Hypotonia [Unknown]

NARRATIVE: CASE EVENT DATE: 201609
